FAERS Safety Report 7897447-8 (Version None)
Quarter: 2011Q4

REPORT INFORMATION
  Report Type: 
  Country: None (occurrence: None)
  Receive Date: 20111103
  Receipt Date: 20111031
  Transmission Date: 20120403
  Serious: Yes (Other)
  Sender: FDA-Public Use
  Company Number: PD 151

PATIENT
  Age: 28 Year
  Sex: Male

DRUGS (1)
  1. CETIRIZINE [Suspect]
     Indication: URTICARIA
     Dosage: DAILY

REACTIONS (2)
  - ERYTHEMA [None]
  - PAPULE [None]
